FAERS Safety Report 21547366 (Version 1)
Quarter: 2022Q4

REPORT INFORMATION
  Report Type: Spontaneous
  Country: US (occurrence: US)
  Receive Date: 20221103
  Receipt Date: 20221103
  Transmission Date: 20230113
  Serious: Yes (Other)
  Sender: FDA-Public Use
  Company Number: US-PBT-006137

PATIENT
  Age: 51 Year
  Sex: Male

DRUGS (5)
  1. TACROLIMUS [Suspect]
     Active Substance: TACROLIMUS
     Indication: Prophylaxis against transplant rejection
     Route: 065
  2. PREDNISONE [Suspect]
     Active Substance: PREDNISONE
     Indication: Prophylaxis against transplant rejection
     Route: 065
  3. VALGANCICLOVIR [Suspect]
     Active Substance: VALGANCICLOVIR
     Indication: Product used for unknown indication
     Route: 065
  4. DAPSONE [Concomitant]
     Active Substance: DAPSONE
     Indication: Antifungal prophylaxis
     Route: 065
  5. PREDNISONE [Suspect]
     Active Substance: PREDNISONE
     Indication: Prophylaxis against transplant rejection
     Route: 065

REACTIONS (7)
  - Cytomegalovirus infection [Recovered/Resolved]
  - Nocardiosis [Recovered/Resolved]
  - Pneumonia pseudomonal [Recovered/Resolved]
  - Clostridium difficile colitis [Recovered/Resolved]
  - Neutropenia [Unknown]
  - Nodular regenerative hyperplasia [Unknown]
  - Disease recurrence [Unknown]
